FAERS Safety Report 23624973 (Version 1)
Quarter: 2024Q1

REPORT INFORMATION
  Report Type: Spontaneous
  Country: JP (occurrence: JP)
  Receive Date: 20240313
  Receipt Date: 20240313
  Transmission Date: 20240410
  Serious: Yes (Other)
  Sender: FDA-Public Use
  Company Number: JP-SANDOZ INC.-SDZ2024JP026253

PATIENT
  Age: 76 Year
  Sex: Male

DRUGS (1)
  1. DECADRON (DEXAMETHASONE SODIUM PHOSPHATE) [Suspect]
     Active Substance: DEXAMETHASONE SODIUM PHOSPHATE
     Indication: Product used for unknown indication
     Dosage: DECADRONE 6.6 MG WAS ADDED TO 200 ML OF REPLACEMENT FLUID AND ADMINISTERED INTRAVENOUSLY
     Route: 041
     Dates: start: 20240118

REACTIONS (1)
  - Renal impairment [Recovering/Resolving]

NARRATIVE: CASE EVENT DATE: 20240118
